FAERS Safety Report 21891605 (Version 1)
Quarter: 2023Q1

REPORT INFORMATION
  Report Type: Spontaneous
  Country: US (occurrence: US)
  Receive Date: 20230120
  Receipt Date: 20230120
  Transmission Date: 20230418
  Serious: Yes (Other)
  Sender: FDA-Public Use
  Company Number: US-AMGEN-USASP2023005479

PATIENT
  Age: 56 Year
  Sex: Male

DRUGS (2)
  1. BEVACIZUMAB [Suspect]
     Active Substance: BEVACIZUMAB
     Indication: Glioblastoma
     Dosage: 10 MILLIGRAM PER KILOGRAM, Q2WK
     Route: 065
  2. TEMOZOLOMIDE [Concomitant]
     Active Substance: TEMOZOLOMIDE
     Indication: Glioblastoma
     Dosage: UNK
     Route: 065

REACTIONS (5)
  - Glioblastoma [Unknown]
  - Radiation necrosis [Unknown]
  - Fall [Unknown]
  - Cerebral haemorrhage [Unknown]
  - Therapy non-responder [Unknown]
